FAERS Safety Report 9201566 (Version 3)
Quarter: 2013Q2

REPORT INFORMATION
  Report Type: Spontaneous
  Country: FR (occurrence: FR)
  Receive Date: 20130401
  Receipt Date: 20130415
  Transmission Date: 20140414
  Serious: Yes (Death, Hospitalization)
  Sender: FDA-Public Use
  Company Number: FR-PFIZER INC-2013097166

PATIENT
  Age: 65 Year
  Sex: Female

DRUGS (2)
  1. SUTENT [Suspect]
     Indication: SYNOVIAL SARCOMA METASTATIC
     Dosage: 25 MG, 1X/DAY
     Route: 048
     Dates: start: 20121020, end: 20121228
  2. OXYNORM [Concomitant]

REACTIONS (4)
  - Cerebral haemorrhage [Fatal]
  - Haemolytic anaemia [Recovering/Resolving]
  - Off label use [Unknown]
  - Blood thyroid stimulating hormone increased [Unknown]
